FAERS Safety Report 11168046 (Version 1)
Quarter: 2015Q2

REPORT INFORMATION
  Report Type: Spontaneous
  Country: US (occurrence: None)
  Receive Date: 20150604
  Receipt Date: 20150604
  Transmission Date: 20150821
  Serious: Yes (Life-Threatening, Hospitalization, Disabling, Other)
  Sender: FDA-Public Use
  Company Number: None

PATIENT
  Age: 64 Year
  Sex: Male
  Weight: 81.65 kg

DRUGS (1)
  1. ENBREL [Suspect]
     Active Substance: ETANERCEPT
     Indication: PSORIASIS
     Dosage: INJECTION IN LEG
     Dates: start: 201106, end: 201306

REACTIONS (12)
  - Decreased appetite [None]
  - Hypophagia [None]
  - Heart valve incompetence [None]
  - Pulmonary oedema [None]
  - Non-Hodgkin^s lymphoma [None]
  - Muscular weakness [None]
  - Muscle fatigue [None]
  - Fall [None]
  - Muscle atrophy [None]
  - Weight decreased [None]
  - Haemorrhage [None]
  - Cardiac valve disease [None]

NARRATIVE: CASE EVENT DATE: 201306
